FAERS Safety Report 7367075-1 (Version None)
Quarter: 2011Q1

REPORT INFORMATION
  Report Type: 
  Country: None (occurrence: None)
  Receive Date: 20110322
  Receipt Date: 20100812
  Transmission Date: 20110831
  Serious: Yes (Hospitalization, Other)
  Sender: FDA-Public Use
  Company Number: US-TYCO HEALTHCARE/MALLINCKRODT-T201001797

PATIENT
  Sex: Female
  Weight: 65.76 kg

DRUGS (1)
  1. METHADONE [Suspect]
     Indication: FIBROMYALGIA
     Dosage: 20-40 MG PER DAY
     Route: 048
     Dates: end: 20100515

REACTIONS (6)
  - VOMITING [None]
  - CARDIO-RESPIRATORY ARREST [None]
  - INTENTIONAL DRUG MISUSE [None]
  - NAUSEA [None]
  - TORSADE DE POINTES [None]
  - ACCIDENTAL OVERDOSE [None]
